FAERS Safety Report 8309498-X (Version None)
Quarter: 2012Q2

REPORT INFORMATION
  Report Type: 
  Country: None (occurrence: None)
  Receive Date: 20120420
  Receipt Date: 20120409
  Transmission Date: 20120825
  Serious: Yes (Hospitalization)
  Sender: FDA-Public Use
  Company Number: GGEL20120400454

PATIENT
  Sex: Female

DRUGS (3)
  1. ZOLPIDEM TARTRATE (ZOLPIDEM) (TABLETS) (ZOLPIDEM) [Concomitant]
  2. CLONAZEPAM [Concomitant]
  3. OXCARBAZEPINE [Suspect]
     Indication: PRODUCT USED FOR UNKNOWN INDICATION
     Dosage: 450 MILLIGRAM, ORAL
     Route: 048
     Dates: start: 20120312

REACTIONS (4)
  - WHITE BLOOD CELL COUNT DECREASED [None]
  - GASTROINTESTINAL DISORDER [None]
  - APHAGIA [None]
  - VOMITING [None]
